FAERS Safety Report 6378749-3 (Version None)
Quarter: 2009Q3

REPORT INFORMATION
  Report Type: 
  Country: None (occurrence: None)
  Receive Date: 20090928
  Receipt Date: 20090914
  Transmission Date: 20100115
  Serious: Yes (Hospitalization)
  Sender: FDA-Public Use
  Company Number: DE-CELGENEUS-062-21880-09072088

PATIENT

DRUGS (3)
  1. REVLIMID [Suspect]
     Dosage: INSTEAD OF 50 MG
     Route: 048
     Dates: start: 20090708, end: 20090708
  2. REVLIMID [Suspect]
     Route: 048
     Dates: start: 20090714
  3. L THYROXIN [Concomitant]
     Indication: HYPOTHYROIDISM
     Route: 065

REACTIONS (3)
  - DRUG ERUPTION [None]
  - MEDICATION ERROR [None]
  - PRURITUS GENERALISED [None]
